FAERS Safety Report 5616319-2 (Version None)
Quarter: 2008Q1

REPORT INFORMATION
  Report Type: 
  Country: None (occurrence: None)
  Receive Date: 20080204
  Receipt Date: 20080121
  Transmission Date: 20080703
  Serious: Yes (Life-Threatening, Hospitalization, Disabling)
  Sender: FDA-Public Use
  Company Number: 023294

PATIENT
  Age: 52 Year
  Sex: Female

DRUGS (1)
  1. LITHIUM CARBONATE [Suspect]
     Indication: DEPRESSION

REACTIONS (19)
  - ANOREXIA [None]
  - ANTIPSYCHOTIC DRUG LEVEL INCREASED [None]
  - ATAXIA [None]
  - BLOOD CREATINE INCREASED [None]
  - BLOOD UREA INCREASED [None]
  - CEREBELLAR ATROPHY [None]
  - CEREBELLAR SYNDROME [None]
  - CONFUSIONAL STATE [None]
  - DISTURBANCE IN ATTENTION [None]
  - DYSARTHRIA [None]
  - DYSPROSODY [None]
  - ENCEPHALOPATHY [None]
  - EYE DISORDER [None]
  - GAIT SPASTIC [None]
  - INSOMNIA [None]
  - INTERMITTENT EXPLOSIVE DISORDER [None]
  - MUSCULAR WEAKNESS [None]
  - MUSCULOSKELETAL STIFFNESS [None]
  - TREMOR [None]
